FAERS Safety Report 8303511-1 (Version None)
Quarter: 2012Q2

REPORT INFORMATION
  Report Type: 
  Country: None (occurrence: None)
  Receive Date: 20120419
  Receipt Date: 20111014
  Transmission Date: 20120825
  Serious: Yes (Other)
  Sender: FDA-Public Use
  Company Number: AEPRT201100282

PATIENT
  Age: 51 Year
  Sex: Female

DRUGS (1)
  1. PROLASTIN [Suspect]
     Indication: ALPHA-1 ANTI-TRYPSIN DEFICIENCY
     Dosage: 5 GM;QW;IV
     Route: 042
     Dates: start: 20111010, end: 20111107

REACTIONS (1)
  - RASH ERYTHEMATOUS [None]
